FAERS Safety Report 20785990 (Version 3)
Quarter: 2024Q2

REPORT INFORMATION
  Report Type: Spontaneous
  Country: US (occurrence: None)
  Receive Date: 20220504
  Receipt Date: 20240526
  Transmission Date: 20240716
  Serious: No
  Sender: FDA-Public Use
  Company Number: US-ROCHE-2977518

PATIENT
  Age: 43 Year
  Sex: Female

DRUGS (1)
  1. OCREVUS [Suspect]
     Active Substance: OCRELIZUMAB
     Indication: Relapsing-remitting multiple sclerosis
     Dosage: ONGIOING YES
     Route: 042
     Dates: start: 201712

REACTIONS (8)
  - Fall [Unknown]
  - Fatigue [Unknown]
  - Abdominal distension [Unknown]
  - Heavy menstrual bleeding [Unknown]
  - Immunisation reaction [Unknown]
  - Joint injury [Unknown]
  - Limb injury [Unknown]
  - Face injury [Unknown]

NARRATIVE: CASE EVENT DATE: 20230810
